FAERS Safety Report 8614379-8 (Version None)
Quarter: 2012Q3

REPORT INFORMATION
  Report Type: 
  Country: None (occurrence: None)
  Receive Date: 20120809
  Receipt Date: 20120723
  Transmission Date: 20120928
  Serious: Yes (Hospitalization)
  Sender: FDA-Public Use
  Company Number: DSJ-2011-24434

PATIENT
  Age: 40 Year
  Sex: Female

DRUGS (3)
  1. OLMESARTAN MEDOXOMIL [Suspect]
     Indication: BLOOD PRESSURE MANAGEMENT
     Dosage: 10 MG, PER ORAL
     Route: 048
  2. ADALAT (NIFEDIPINE) (NIFEDIPINE) [Concomitant]
  3. PREDNISOLONE [Concomitant]

REACTIONS (9)
  - MATERNAL EXPOSURE DURING PREGNANCY [None]
  - PRE-ECLAMPSIA [None]
  - FOETAL DEATH [None]
  - DIZZINESS [None]
  - ASPARTATE AMINOTRANSFERASE INCREASED [None]
  - PLATELET COUNT DECREASED [None]
  - CONTRAINDICATION TO MEDICAL TREATMENT [None]
  - OLIGOHYDRAMNIOS [None]
  - ALANINE AMINOTRANSFERASE INCREASED [None]
